FAERS Safety Report 19034545 (Version 1)
Quarter: 2021Q1

REPORT INFORMATION
  Report Type: Spontaneous
  Country: CA (occurrence: CA)
  Receive Date: 20210319
  Receipt Date: 20210319
  Transmission Date: 20210420
  Serious: Yes (Life-Threatening, Hospitalization)
  Sender: FDA-Public Use
  Company Number: CA-TEVA-2021-CA-1891262

PATIENT
  Age: 4 Year
  Sex: Female
  Weight: 18 kg

DRUGS (4)
  1. VINCRISTINE SULFATE. [Suspect]
     Active Substance: VINCRISTINE SULFATE
     Route: 065
  2. ONCASPAR [Suspect]
     Active Substance: PEGASPARGASE
     Route: 065
  3. METHOTREXATE. [Suspect]
     Active Substance: METHOTREXATE
     Route: 065
  4. CYTARABINE INJECTION [Suspect]
     Active Substance: CYTARABINE
     Route: 065

REACTIONS (1)
  - Febrile neutropenia [Recovered/Resolved]
